FAERS Safety Report 4848230-9 (Version None)
Quarter: 2005Q4

REPORT INFORMATION
  Report Type: 
  Country: None (occurrence: None)
  Receive Date: 20051206
  Receipt Date: 20051115
  Transmission Date: 20060501
  Serious: Yes (Other)
  Sender: FDA-Public Use
  Company Number: US200511000974

PATIENT
  Age: 59 Year
  Sex: Male

DRUGS (3)
  1. HUMULIN 70/30 [Suspect]
     Indication: DIABETES MELLITUS NON-INSULIN-DEPENDENT
     Dates: start: 19920101, end: 20050201
  2. HUMULIN 70/30 [Suspect]
     Indication: DIABETES MELLITUS NON-INSULIN-DEPENDENT
     Dates: start: 20051110
  3. HUMALOG  LISPRO              (LISPRO ) [Suspect]
     Dates: start: 20050201, end: 20051110

REACTIONS (10)
  - DEPRESSION [None]
  - FEELING ABNORMAL [None]
  - LIBIDO DECREASED [None]
  - OEDEMA PERIPHERAL [None]
  - PARAESTHESIA [None]
  - PITUITARY TUMOUR [None]
  - SKIN ATROPHY [None]
  - SKIN DISCOLOURATION [None]
  - SUICIDAL IDEATION [None]
  - VISUAL DISTURBANCE [None]
